FAERS Safety Report 13760207 (Version 3)
Quarter: 2018Q1

REPORT INFORMATION
  Report Type: Spontaneous
  Country: US (occurrence: US)
  Receive Date: 20170717
  Receipt Date: 20180216
  Transmission Date: 20180508
  Serious: Yes (Other)
  Sender: FDA-Public Use
  Company Number: US-BAUSCH-BL-2017-010013

PATIENT
  Age: 63 Year
  Sex: Female
  Weight: 62.65 kg

DRUGS (4)
  1. XIFAXAN [Suspect]
     Active Substance: RIFAXIMIN
     Route: 048
  2. XIFAXAN [Suspect]
     Active Substance: RIFAXIMIN
     Indication: HEPATIC CIRRHOSIS
     Route: 048
     Dates: start: 2017, end: 20171228
  3. XIFAXAN [Suspect]
     Active Substance: RIFAXIMIN
     Indication: HEPATIC ENCEPHALOPATHY
     Route: 048
     Dates: start: 2014, end: 201704
  4. XIFAXAN [Suspect]
     Active Substance: RIFAXIMIN
     Route: 048
     Dates: start: 2018

REACTIONS (4)
  - Schizophrenia [Recovered/Resolved]
  - Drug dose omission [Unknown]
  - Treatment noncompliance [Unknown]
  - Thinking abnormal [Recovered/Resolved]

NARRATIVE: CASE EVENT DATE: 201704
